FAERS Safety Report 10998146 (Version 3)
Quarter: 2015Q2

REPORT INFORMATION
  Report Type: Spontaneous
  Country: JP (occurrence: None)
  Receive Date: 20150406
  Receipt Date: 20150522
  Transmission Date: 20150821
  Serious: Yes (Other)
  Sender: FDA-Public Use
  Company Number: 2015-10978

PATIENT
  Age: 71 Year
  Sex: Male

DRUGS (4)
  1. EYLEA [Suspect]
     Active Substance: AFLIBERCEPT
     Indication: AGE-RELATED MACULAR DEGENERATION
     Route: 031
     Dates: start: 20150227, end: 20150227
  2. PATANOL (OLOPATADINE HYDROCHLORIDE) [Concomitant]
  3. CRAVIT (LEVOFLOXACIN) [Concomitant]
  4. EYLEA [Suspect]
     Active Substance: AFLIBERCEPT
     Route: 031
     Dates: start: 20150227, end: 20150227

REACTIONS (3)
  - Visual acuity reduced [None]
  - Endophthalmitis [None]
  - Macular hole [None]

NARRATIVE: CASE EVENT DATE: 20150303
